FAERS Safety Report 25833168 (Version 1)
Quarter: 2025Q3

REPORT INFORMATION
  Report Type: Report from Study
  Country: US (occurrence: US)
  Receive Date: 20250922
  Receipt Date: 20250922
  Transmission Date: 20251021
  Serious: Yes (Other)
  Sender: IONIS PHARMACEUTICALS
  Company Number: US-IONIS PHARMACEUTICALS, INC.-2025IS003099

PATIENT

DRUGS (1)
  1. TRYNGOLZA [Suspect]
     Active Substance: OLEZARSEN SODIUM
     Indication: Familial hypertriglyceridaemia
     Dosage: 80 MILLIGRAM, Q1M
     Route: 058
     Dates: start: 20250522

REACTIONS (2)
  - Hepatic neoplasm [Not Recovered/Not Resolved]
  - Asthenia [Not Recovered/Not Resolved]
